FAERS Safety Report 8074705-8 (Version None)
Quarter: 2012Q1

REPORT INFORMATION
  Report Type: 
  Country: None (occurrence: None)
  Receive Date: 20120126
  Receipt Date: 20120119
  Transmission Date: 20120608
  Serious: Yes (Death, Hospitalization)
  Sender: FDA-Public Use
  Company Number: GB-ROCHE-1033056

PATIENT
  Sex: Male

DRUGS (1)
  1. ALTEPLASE [Suspect]
     Indication: ISCHAEMIC STROKE
     Dosage: GIVEN 8 ML BOLUS FOLLOWED BY 68 ML INFUSION
     Route: 042
     Dates: start: 20111111

REACTIONS (1)
  - BRAIN STEM HAEMORRHAGE [None]
